FAERS Safety Report 9158253 (Version 4)
Quarter: 2013Q2

REPORT INFORMATION
  Report Type: Spontaneous
  Country: US (occurrence: US)
  Receive Date: 20130312
  Receipt Date: 20130528
  Transmission Date: 20140414
  Serious: Yes (Hospitalization, Other)
  Sender: FDA-Public Use
  Company Number: US-BAXTER-2013BAX008695

PATIENT
  Age: 32 Year
  Sex: Female

DRUGS (5)
  1. DIANEAL LOW CALCIUM [Suspect]
     Indication: PERITONEAL DIALYSIS
     Route: 033
     Dates: start: 201106, end: 20130423
  2. DIANEAL LOW CALCIUM [Suspect]
     Route: 033
     Dates: start: 201106, end: 20130423
  3. DIANEAL LOW CALCIUM [Suspect]
     Route: 033
     Dates: start: 20130430
  4. DIANEAL LOW CALCIUM [Suspect]
     Route: 033
     Dates: start: 20130430
  5. DIANEAL LOW CALCIUM (ULTRABAG) [Suspect]
     Indication: PERITONEAL DIALYSIS
     Route: 033
     Dates: start: 2011

REACTIONS (4)
  - Atypical pneumonia [Recovering/Resolving]
  - Heart rate increased [Recovering/Resolving]
  - Chest pain [Recovering/Resolving]
  - Fluid overload [Recovered/Resolved]
